FAERS Safety Report 10681801 (Version 1)
Quarter: 2014Q4

REPORT INFORMATION
  Report Type: Spontaneous
  Country: US (occurrence: None)
  Receive Date: 20141224
  Receipt Date: 20141224
  Transmission Date: 20150529
  Serious: Yes (Other)
  Sender: FDA-Public Use
  Company Number: 2014JUB00222

PATIENT
  Age: 76 Year
  Sex: Male
  Weight: 79.4 kg

DRUGS (2)
  1. PANTOPRAZOLE SODIUM [Suspect]
     Active Substance: PANTOPRAZOLE SODIUM
     Indication: ANTACID THERAPY
     Dosage: 20MG, 1X/DAY ORAL
     Route: 048
     Dates: end: 2009
  2. BLOOD PRESSURE MEDICINE [Concomitant]
     Active Substance: UNSPECIFIED INGREDIENT

REACTIONS (5)
  - Hiatus hernia [None]
  - Dyskinesia [None]
  - Oesophageal disorder [None]
  - Foreign body [None]
  - Weight decreased [None]

NARRATIVE: CASE EVENT DATE: 2014
